FAERS Safety Report 10054941 (Version 1)
Quarter: 2014Q2

REPORT INFORMATION
  Report Type: Spontaneous
  Country: GB (occurrence: GB)
  Receive Date: 20140402
  Receipt Date: 20140402
  Transmission Date: 20141212
  Serious: Yes (Disabling)
  Sender: FDA-Public Use
  Company Number: ALCN2014GB001965

PATIENT
  Age: 26 Year
  Sex: Female
  Weight: 59 kg

DRUGS (3)
  1. AZOPT [Suspect]
     Indication: GLAUCOMA
     Dosage: ONCE DAILY
     Route: 047
     Dates: start: 20130204, end: 20131227
  2. TRAVATAN [Concomitant]
     Indication: GLAUCOMA
     Dosage: 2 GTT, QD
     Route: 047
     Dates: start: 20100510
  3. COMBIGAN [Concomitant]
     Indication: GLAUCOMA
     Dosage: 2 GTT, BID
     Route: 047
     Dates: start: 20100510

REACTIONS (2)
  - Aphthous stomatitis [Recovered/Resolved]
  - Alopecia [Recovered/Resolved]
